FAERS Safety Report 9415792 (Version 1)
Quarter: 2013Q3

REPORT INFORMATION
  Report Type: Spontaneous
  Country: AU (occurrence: AU)
  Receive Date: 20130724
  Receipt Date: 20130724
  Transmission Date: 20140515
  Serious: Yes (Hospitalization)
  Sender: FDA-Public Use
  Company Number: AU-009507513-1307AUS007939

PATIENT
  Age: 4 Year
  Sex: Male

DRUGS (2)
  1. CLARATYNE [Suspect]
     Dosage: 10 MG, UNK
     Route: 048
  2. PHENERGAN (PROMETHAZINE HYDROCHLORIDE) [Suspect]
     Dosage: 25 MG, UNK

REACTIONS (2)
  - Somnolence [Unknown]
  - Medication error [Unknown]
